FAERS Safety Report 5375535-8 (Version None)
Quarter: 2007Q2

REPORT INFORMATION
  Report Type: 
  Country: None (occurrence: None)
  Receive Date: 20070629
  Receipt Date: 20070618
  Transmission Date: 20071010
  Serious: Yes (Hospitalization, Other)
  Sender: FDA-Public Use
  Company Number: US-PFIZER INC-2007050889

PATIENT
  Sex: Male
  Weight: 134.7 kg

DRUGS (3)
  1. CHANTIX [Suspect]
     Indication: SMOKING CESSATION THERAPY
  2. LISINOPRIL AND HYDROCHLOROTHIAZIDE [Suspect]
     Indication: HYPERTENSION
     Dosage: TEXT:20/12.5 DAILY EVERY DAY TDD:20/12.5
     Dates: start: 20061001, end: 20070101
  3. PAXIL [Concomitant]

REACTIONS (8)
  - DEHYDRATION [None]
  - DIARRHOEA [None]
  - HYPOTENSION [None]
  - INTENTIONAL DRUG MISUSE [None]
  - MALAISE [None]
  - OEDEMA PERIPHERAL [None]
  - PANIC ATTACK [None]
  - PHARYNGEAL OEDEMA [None]
